FAERS Safety Report 22741566 (Version 4)
Quarter: 2023Q4

REPORT INFORMATION
  Report Type: Report from Study
  Country: US (occurrence: None)
  Receive Date: 20230724
  Receipt Date: 20231019
  Transmission Date: 20240110
  Serious: Yes (Other)
  Sender: FDA-Public Use
  Company Number: US-ROCHE-3389648

PATIENT
  Age: 34 Year
  Sex: Female
  Weight: 117.9 kg

DRUGS (10)
  1. ATEZOLIZUMAB [Suspect]
     Active Substance: ATEZOLIZUMAB
     Indication: Adenocarcinoma
     Route: 042
     Dates: start: 20230517
  2. BUPARLISIB [Suspect]
     Active Substance: BUPARLISIB
     Indication: Adenocarcinoma
     Route: 048
     Dates: start: 20230517
  3. BUPARLISIB [Suspect]
     Active Substance: BUPARLISIB
     Route: 048
     Dates: start: 20230602
  4. OXYCODONE [Concomitant]
     Active Substance: OXYCODONE
  5. UREA [Concomitant]
     Active Substance: UREA
     Dates: start: 202203
  6. FERROUS SULFATE [Concomitant]
     Active Substance: FERROUS SULFATE
     Dates: start: 202109
  7. ONDANSETRON [Concomitant]
     Active Substance: ONDANSETRON
     Dates: start: 202202
  8. MACROBID [Concomitant]
     Active Substance: NITROFURANTOIN\NITROFURANTOIN MONOHYDRATE
     Dates: start: 20230630
  9. LOMOTIL (MEXICO) [Concomitant]
  10. LOPERAMIDE [Concomitant]
     Active Substance: LOPERAMIDE

REACTIONS (1)
  - Alanine aminotransferase increased [Recovered/Resolved]

NARRATIVE: CASE EVENT DATE: 20230706
